FAERS Safety Report 9050319 (Version 1)
Quarter: 2013Q1

REPORT INFORMATION
  Report Type: Report from Study
  Country: AU (occurrence: AU)
  Receive Date: 20130205
  Receipt Date: 20130205
  Transmission Date: 20140127
  Serious: Yes (Hospitalization)
  Sender: FDA-Public Use
  Company Number: PHHY2013AU009658

PATIENT
  Sex: Male

DRUGS (1)
  1. CLOZARIL [Suspect]
     Dosage: 300 MG, UNK
     Dates: start: 20041205

REACTIONS (4)
  - Mental impairment [Recovering/Resolving]
  - Psychiatric symptom [Recovering/Resolving]
  - Thinking abnormal [Recovering/Resolving]
  - Hallucination, auditory [Recovering/Resolving]
